FAERS Safety Report 16093898 (Version 1)
Quarter: 2019Q1

REPORT INFORMATION
  Report Type: Spontaneous
  Country: US (occurrence: US)
  Receive Date: 20190320
  Receipt Date: 20190320
  Transmission Date: 20190418
  Serious: No
  Sender: FDA-Public Use
  Company Number: US-TEVA-2019-US-1016822

PATIENT
  Age: 78 Year
  Sex: Male

DRUGS (2)
  1. MUPIROCIN. [Suspect]
     Active Substance: MUPIROCIN
     Indication: NASAL DISCOMFORT
     Route: 045
     Dates: start: 20190215
  2. MUPIROCIN. [Suspect]
     Active Substance: MUPIROCIN
     Indication: EPISTAXIS

REACTIONS (5)
  - Incorrect route of product administration [Unknown]
  - Respiration abnormal [Unknown]
  - Dysphagia [Unknown]
  - Palpitations [Unknown]
  - Oropharyngeal pain [Unknown]
